FAERS Safety Report 15714449 (Version 4)
Quarter: 2020Q2

REPORT INFORMATION
  Report Type: Spontaneous
  Country: US (occurrence: US)
  Receive Date: 20181212
  Receipt Date: 20200625
  Transmission Date: 20200713
  Serious: No
  Sender: FDA-Public Use
  Company Number: US-SA-2018SA337286

PATIENT

DRUGS (2)
  1. DUPIXENT [Suspect]
     Active Substance: DUPILUMAB
     Indication: DERMATITIS ATOPIC
     Dosage: 300 MG, QOW
     Route: 058
     Dates: start: 20180619
  2. DUPIXENT [Suspect]
     Active Substance: DUPILUMAB
     Dosage: 300 MG, OTHER
     Route: 058
     Dates: start: 201905, end: 20200521

REACTIONS (7)
  - Drug ineffective [Unknown]
  - Pain [Unknown]
  - Conjunctivitis [Unknown]
  - Eye discharge [Unknown]
  - Rash [Unknown]
  - Product dose omission [Unknown]
  - Arthralgia [Unknown]

NARRATIVE: CASE EVENT DATE: 20181201
